FAERS Safety Report 8509272-5 (Version None)
Quarter: 2012Q3

REPORT INFORMATION
  Report Type: 
  Country: None (occurrence: None)
  Receive Date: 20120713
  Receipt Date: 20120705
  Transmission Date: 20120928
  Serious: Yes (Other)
  Sender: FDA-Public Use
  Company Number: US-ASTRAZENECA-2012SE04593

PATIENT
  Age: 76 Year
  Sex: Female

DRUGS (2)
  1. NEXIUM [Suspect]
     Route: 048
  2. PRILOSEC [Suspect]
     Route: 048

REACTIONS (10)
  - BLOOD GLUCOSE DECREASED [None]
  - CLOSTRIDIAL INFECTION [None]
  - GASTROOESOPHAGEAL REFLUX DISEASE [None]
  - NEOPLASM MALIGNANT [None]
  - NERVOUS SYSTEM DISORDER [None]
  - EXTRANODAL MARGINAL ZONE B-CELL LYMPHOMA (MALT TYPE) [None]
  - CHEST PAIN [None]
  - INSOMNIA [None]
  - LYMPHOMA [None]
  - DRUG DOSE OMISSION [None]
